FAERS Safety Report 14426985 (Version 1)
Quarter: 2018Q1

REPORT INFORMATION
  Report Type: Spontaneous
  Country: US (occurrence: US)
  Receive Date: 20180123
  Receipt Date: 20180123
  Transmission Date: 20180509
  Serious: No
  Sender: FDA-Public Use
  Company Number: US-ST. RENATUS-2017STR00049

PATIENT
  Sex: Male

DRUGS (1)
  1. KOVANAZE [Suspect]
     Active Substance: OXYMETAZOLINE HYDROCHLORIDE\TETRACAINE HYDROCHLORIDE
     Indication: TOOTH REPAIR
     Dosage: 2 DOSAGE UNITS, ONCE

REACTIONS (2)
  - Product storage error [Recovered/Resolved]
  - Drug ineffective [Recovered/Resolved]
